FAERS Safety Report 13151790 (Version 2)
Quarter: 2017Q1

REPORT INFORMATION
  Report Type: Spontaneous
  Country: US (occurrence: US)
  Receive Date: 20170125
  Receipt Date: 20170228
  Transmission Date: 20170428
  Serious: Yes (Other)
  Sender: FDA-Public Use
  Company Number: US-UCBSA-2017002514

PATIENT
  Sex: Female
  Weight: 58 kg

DRUGS (14)
  1. FAMOTIDINE. [Concomitant]
     Active Substance: FAMOTIDINE
     Indication: OESOPHAGEAL DISORDER
     Dosage: 20 MG, 2X/DAY (BID)
  2. ASPIRIN. [Concomitant]
     Active Substance: ASPIRIN
     Indication: PRODUCT USED FOR UNKNOWN INDICATION
     Dosage: 81 MG, 2X/DAY (BID)
  3. KEPPRA [Suspect]
     Active Substance: LEVETIRACETAM
     Indication: SEIZURE
     Dosage: UNK
  4. DILANTIN [Suspect]
     Active Substance: PHENYTOIN
     Indication: SEIZURE
     Dosage: UNK
  5. METOPROLOL. [Concomitant]
     Active Substance: METOPROLOL
     Indication: ATRIAL FIBRILLATION
     Dosage: 25 MG, ONCE DAILY (QD)
  6. NEURONTIN [Suspect]
     Active Substance: GABAPENTIN
     Dosage: NINE 300 MG CAPSULES A DAY
  7. GABAPENTIN. [Suspect]
     Active Substance: GABAPENTIN
     Indication: PRODUCT USED FOR UNKNOWN INDICATION
     Dosage: UNK
  8. MELATONIN [Concomitant]
     Active Substance: MELATONIN
     Indication: SLEEP DISORDER
     Dosage: UNK, ONCE DAILY (QD)
  9. NEURONTIN [Suspect]
     Active Substance: GABAPENTIN
     Dosage: 900 MG, 3X/DAY (TID)
  10. NEURONTIN [Suspect]
     Active Substance: GABAPENTIN
     Dosage: 4 TO 6 CAPSULES A DAY
  11. IBUPROFEN. [Suspect]
     Active Substance: IBUPROFEN
     Indication: BACK DISORDER
     Dosage: UNK
  12. NEURONTIN [Suspect]
     Active Substance: GABAPENTIN
     Indication: PARTIAL SEIZURES
     Dosage: HIGH DOSE
  13. VITAMIN C [Concomitant]
     Active Substance: ASCORBIC ACID
     Indication: PRODUCT USED FOR UNKNOWN INDICATION
     Dosage: 1000 MG, 2X/DAY (BID)
  14. PHENERGAN [Concomitant]
     Active Substance: PROMETHAZINE HYDROCHLORIDE
     Indication: NAUSEA
     Dosage: 0.25 DF, AS NEEDED (PRN)

REACTIONS (20)
  - Anaphylactic shock [Unknown]
  - Dry mouth [Unknown]
  - Hiccups [Unknown]
  - Balance disorder [Unknown]
  - Intervertebral disc protrusion [Unknown]
  - Systemic lupus erythematosus [Unknown]
  - Renal impairment [Unknown]
  - Raynaud^s phenomenon [Unknown]
  - Sjogren^s syndrome [Unknown]
  - Vomiting [Unknown]
  - Nasal dryness [Unknown]
  - Spinal fracture [Unknown]
  - Heart valve incompetence [Unknown]
  - Alopecia [Unknown]
  - Feeling jittery [Not Recovered/Not Resolved]
  - Nausea [Unknown]
  - Bradycardia [Not Recovered/Not Resolved]
  - Fibromyalgia [Unknown]
  - Seizure [Unknown]
  - Osteoporosis [Unknown]

NARRATIVE: CASE EVENT DATE: 1997
